FAERS Safety Report 13916683 (Version 2)
Quarter: 2017Q4

REPORT INFORMATION
  Report Type: Spontaneous
  Country: US (occurrence: US)
  Receive Date: 20170829
  Receipt Date: 20171018
  Transmission Date: 20180320
  Serious: Yes (Other)
  Sender: FDA-Public Use
  Company Number: US-SA-2017SA157377

PATIENT
  Age: 63 Year
  Sex: Female
  Weight: 63.5 kg

DRUGS (4)
  1. DULCOLAX NOS [Suspect]
     Active Substance: BISACODYL OR DOCUSATE SODIUM
     Indication: NEUROGENIC BOWEL
     Dosage: START DATE 20 YEARS AGO
     Route: 048
  2. EX-LAX REGULAR STRENGTH STIMULANT LAXATIVE [Concomitant]
     Active Substance: SENNOSIDES
     Route: 065
  3. DULCOLAX NOS [Suspect]
     Active Substance: BISACODYL OR DOCUSATE SODIUM
     Indication: DRUG DEPENDENCE
     Dosage: START DATE 20 YEARS AGO
     Route: 048
  4. DULCOLAX NOS [Suspect]
     Active Substance: BISACODYL OR DOCUSATE SODIUM
     Indication: SPINAL CORD INJURY
     Dosage: START DATE 20 YEARS AGO
     Route: 048

REACTIONS (6)
  - Vomiting [Unknown]
  - Self-medication [Unknown]
  - Diarrhoea [Recovered/Resolved]
  - Medication residue present [Unknown]
  - Product use issue [Unknown]
  - Drug dependence [Unknown]
